FAERS Safety Report 18270263 (Version 5)
Quarter: 2022Q1

REPORT INFORMATION
  Report Type: Spontaneous
  Country: US (occurrence: US)
  Receive Date: 20200915
  Receipt Date: 20220316
  Transmission Date: 20220423
  Serious: No
  Sender: FDA-Public Use
  Company Number: US-PFIZER INC-2020300981

PATIENT
  Age: 93 Year
  Sex: Female

DRUGS (1)
  1. BOSULIF [Suspect]
     Active Substance: BOSUTINIB MONOHYDRATE
     Dosage: 100 MG, 1X/DAY (TAKE 1 TABLET DAILY WITH BREATKFAST)
     Route: 048

REACTIONS (2)
  - Hypoacusis [Unknown]
  - Product dose omission issue [Unknown]
